FAERS Safety Report 6409708-X (Version None)
Quarter: 2009Q4

REPORT INFORMATION
  Report Type: 
  Country: None (occurrence: None)
  Receive Date: 20091022
  Receipt Date: 20091008
  Transmission Date: 20100525
  Serious: Yes (Other)
  Sender: FDA-Public Use
  Company Number: PHHY2009BR43789

PATIENT
  Age: 72 Year
  Sex: Female
  Weight: 75 kg

DRUGS (11)
  1. GALVUS MET [Suspect]
     Indication: DIABETES MELLITUS
     Dosage: 1 DF (850/50 MG) IN THE MORNING
     Route: 048
  2. PARACETAMOL [Concomitant]
     Indication: NEUROPATHY PERIPHERAL
     Dosage: 1 DF, BID
     Route: 048
  3. GLUCOFORMIN [Concomitant]
     Indication: DIABETES MELLITUS
     Dosage: 1 DF (850 MG) DAILY
     Route: 048
  4. VASOPRIL [Concomitant]
     Indication: HYPERTENSION
     Dosage: 1 DF, Q12H
     Route: 048
  5. AMLODIPINE [Concomitant]
     Indication: HYPERTENSION
     Dosage: 1 DF, Q12H
     Route: 048
  6. GLIMEPIRIDE [Concomitant]
     Indication: DIABETES MELLITUS
     Dosage: 1 DF, Q12H
     Route: 048
  7. AAS [Concomitant]
     Indication: ANTICOAGULANT THERAPY
     Dosage: 1 DF, BID
     Route: 048
  8. FERROUS GLYCINE SULFATE [Concomitant]
     Indication: ANAEMIA
     Dosage: 1 TABLET DAILY
     Route: 048
  9. CALTRATE + D                       /00944201/ [Concomitant]
     Dosage: 1 TABLET DAILY (400 OR 600 MG)
     Route: 048
  10. SIMVASTATIN [Concomitant]
     Dosage: 1 TABLET AT NIGHT
     Route: 048
  11. ATORVASTATIN [Concomitant]
     Dosage: 1 TABLET DAILY
     Route: 048

REACTIONS (6)
  - DIZZINESS [None]
  - DYSGEUSIA [None]
  - FEELING ABNORMAL [None]
  - LABYRINTHITIS [None]
  - NAIL DISORDER [None]
  - NAUSEA [None]
